FAERS Safety Report 20992340 (Version 7)
Quarter: 2022Q3

REPORT INFORMATION
  Report Type: Spontaneous
  Country: US (occurrence: US)
  Receive Date: 20220622
  Receipt Date: 20220908
  Transmission Date: 20221027
  Serious: No
  Sender: FDA-Public Use
  Company Number: US-PFIZER INC-PV202200006533

PATIENT
  Age: 72 Year
  Sex: Female

DRUGS (2)
  1. IBRANCE [Suspect]
     Active Substance: PALBOCICLIB
     Dosage: 125 MG
  2. IBRANCE [Suspect]
     Active Substance: PALBOCICLIB
     Dosage: 100 MG

REACTIONS (10)
  - Product dispensing issue [Unknown]
  - Rash [Recovered/Resolved]
  - Neoplasm progression [Unknown]
  - Pain [Unknown]
  - Bone pain [Unknown]
  - Skin exfoliation [Recovered/Resolved]
  - Nasal congestion [Recovered/Resolved]
  - White blood cell count decreased [Unknown]
  - Full blood count decreased [Unknown]
  - Investigation abnormal [Unknown]
